FAERS Safety Report 8840957 (Version 1)
Quarter: 2012Q4

REPORT INFORMATION
  Report Type: 
  Country: US (occurrence: US)
  Receive Date: 20121015
  Receipt Date: 20121015
  Transmission Date: 20130627
  Serious: Yes (Hospitalization)
  Sender: FDA-Public Use
  Company Number: US-ROCHE-1132717

PATIENT

DRUGS (1)
  1. NUTROPIN [Suspect]
     Indication: CONGENITAL CYSTIC KIDNEY DISEASE
     Route: 065

REACTIONS (4)
  - Acidosis [Unknown]
  - Abdominal distension [Unknown]
  - Anaemia [Unknown]
  - Increased tendency to bruise [Unknown]
